FAERS Safety Report 5373094-7 (Version None)
Quarter: 2007Q2

REPORT INFORMATION
  Report Type: 
  Country: None (occurrence: None)
  Receive Date: 20070619
  Receipt Date: 20070424
  Transmission Date: 20071010
  Serious: No
  Sender: FDA-Public Use
  Company Number: 2007US001001

PATIENT
  Age: 74 Year
  Sex: Female

DRUGS (1)
  1. VESICARE [Suspect]
     Dosage: ORAL
     Route: 048

REACTIONS (1)
  - THROMBOCYTOPENIA [None]
